FAERS Safety Report 24787267 (Version 1)
Quarter: 2024Q4

REPORT INFORMATION
  Report Type: Spontaneous
  Country: DE (occurrence: DE)
  Receive Date: 20241230
  Receipt Date: 20241230
  Transmission Date: 20250114
  Serious: Yes (Other)
  Sender: REGENERON
  Company Number: DE-BAYER-2024A137019

PATIENT
  Age: 77 Year
  Sex: Female

DRUGS (1)
  1. EYLEA HD [Suspect]
     Active Substance: AFLIBERCEPT
     Indication: Neovascular age-related macular degeneration
     Dosage: UNK, SOLUTION FOR INJECTION, 114.3 MG/ML
     Dates: start: 20240903

REACTIONS (3)
  - Blindness [Recovering/Resolving]
  - Uveitis [Unknown]
  - Vitreous opacities [Unknown]

NARRATIVE: CASE EVENT DATE: 20240901
